FAERS Safety Report 17117619 (Version 2)
Quarter: 2021Q1

REPORT INFORMATION
  Report Type: Spontaneous
  Country: US (occurrence: US)
  Receive Date: 20191205
  Receipt Date: 20210224
  Transmission Date: 20210419
  Serious: No
  Sender: FDA-Public Use
  Company Number: US-BIOCODEX SA-201901290

PATIENT
  Age: 4 Year
  Sex: Male
  Weight: 24.95 kg

DRUGS (6)
  1. DEPAKOTE [Concomitant]
     Active Substance: DIVALPROEX SODIUM
  2. CLOBAZAM. [Concomitant]
     Active Substance: CLOBAZAM
     Indication: SEVERE MYOCLONIC EPILEPSY OF INFANCY
  3. DIACOMIT [Suspect]
     Active Substance: STIRIPENTOL
     Indication: SEVERE MYOCLONIC EPILEPSY OF INFANCY
     Dosage: 300MG TWICE A DAY
     Route: 065
     Dates: start: 20190530, end: 20190923
  4. FENFLURAMINE [Concomitant]
     Active Substance: FENFLURAMINE
  5. KEPPRA [Concomitant]
     Active Substance: LEVETIRACETAM
  6. DIACOMIT [Suspect]
     Active Substance: STIRIPENTOL
     Dosage: 250 MG TWICE A DAY
     Route: 065

REACTIONS (2)
  - No adverse event [Unknown]
  - Drug ineffective [Unknown]

NARRATIVE: CASE EVENT DATE: 20190923
